FAERS Safety Report 10036350 (Version 1)
Quarter: 2014Q1

REPORT INFORMATION
  Report Type: Spontaneous
  Country: FR (occurrence: GB)
  Receive Date: 20140325
  Receipt Date: 20140325
  Transmission Date: 20141002
  Serious: Yes (Hospitalization, Other)
  Sender: FDA-Public Use
  Company Number: GB-FRI-1000065700

PATIENT
  Sex: Female

DRUGS (1)
  1. CAMPRAL [Suspect]
     Dates: start: 201401

REACTIONS (2)
  - Neoplasm malignant [Unknown]
  - Aphagia [Unknown]
